FAERS Safety Report 16379395 (Version 1)
Quarter: 2019Q2

REPORT INFORMATION
  Report Type: Spontaneous
  Country: DE (occurrence: DE)
  Receive Date: 20190531
  Receipt Date: 20190531
  Transmission Date: 20190711
  Serious: Yes (Other)
  Sender: FDA-Public Use
  Company Number: DE-NAPPMUNDI-GBR-2019-0064122

PATIENT
  Age: 50 Year
  Sex: Female

DRUGS (6)
  1. NOVALGIN                           /00169801/ [Concomitant]
     Active Substance: ACETAMINOPHEN\CAFFEINE\PROPYPHENAZONE
     Indication: PAIN
  2. SUBSTITOL [Suspect]
     Active Substance: MORPHINE SULFATE
     Indication: ANALGESIC THERAPY
     Dosage: 600 MG, UNK
     Route: 048
     Dates: start: 20161103
  3. OXYCODONE HYDROCHLORIDE. [Concomitant]
     Active Substance: OXYCODONE HYDROCHLORIDE
     Indication: PAIN
  4. DIAMORPHINE [Concomitant]
     Active Substance: DIAMORPHINE
     Dosage: 2000 MG, DAILY
  5. DIAMORPHINE [Concomitant]
     Active Substance: DIAMORPHINE
     Indication: ANALGESIC THERAPY
     Dosage: 1700 MG, UNK
     Route: 048
     Dates: start: 201612
  6. FENTANYL. [Concomitant]
     Active Substance: FENTANYL

REACTIONS (4)
  - Hepatitis C [Not Recovered/Not Resolved]
  - Vomiting [Recovered/Resolved]
  - Therapeutic response unexpected [Recovered/Resolved]
  - Transaminases increased [Not Recovered/Not Resolved]

NARRATIVE: CASE EVENT DATE: 20180918
